FAERS Safety Report 10174761 (Version 2)
Quarter: 2014Q2

REPORT INFORMATION
  Report Type: Spontaneous
  Country: FR (occurrence: FR)
  Receive Date: 20140515
  Receipt Date: 20140516
  Transmission Date: 20141212
  Serious: Yes (Hospitalization)
  Sender: FDA-Public Use
  Company Number: FR-PFIZER INC-2014130429

PATIENT
  Age: 62 Year
  Sex: Male

DRUGS (3)
  1. TAHOR [Suspect]
     Dosage: 20 MG, DAILY
     Route: 048
  2. TRIATEC [Suspect]
     Dosage: 5 MG, 1X/DAY
     Route: 048
     Dates: start: 201103
  3. DETENSIEL [Suspect]
     Dosage: 10 MG, DAILY
     Route: 048

REACTIONS (1)
  - Eosinophilia [Not Recovered/Not Resolved]
